FAERS Safety Report 8829557 (Version 1)
Quarter: 2012Q4

REPORT INFORMATION
  Report Type: 
  Country: US (occurrence: US)
  Receive Date: 20121008
  Receipt Date: 20121008
  Transmission Date: 20130627
  Serious: Yes (Other)
  Sender: FDA-Public Use
  Company Number: US-ROCHE-1131162

PATIENT
  Age: 85 Year
  Sex: Male

DRUGS (1)
  1. RITUXAN [Suspect]
     Indication: AUTOIMMUNE THROMBOCYTOPENIA
     Dosage: 700 mg weekly
     Route: 042
     Dates: start: 20010521, end: 20010809

REACTIONS (2)
  - Blindness [Unknown]
  - Hearing impaired [Unknown]
